FAERS Safety Report 12213183 (Version 1)
Quarter: 2016Q1

REPORT INFORMATION
  Report Type: Spontaneous
  Country: US (occurrence: US)
  Receive Date: 20160328
  Receipt Date: 20160328
  Transmission Date: 20160526
  Serious: No
  Sender: FDA-Public Use
  Company Number: US-BIOGEN-2016BI00209679

PATIENT

DRUGS (2)
  1. TECFIDERA [Suspect]
     Active Substance: DIMETHYL FUMARATE
     Indication: MULTIPLE SCLEROSIS
     Route: 065
  2. AMPYRA [Concomitant]
     Active Substance: DALFAMPRIDINE
     Indication: PRODUCT USED FOR UNKNOWN INDICATION

REACTIONS (8)
  - Adverse reaction [Unknown]
  - Peroneal nerve palsy [Unknown]
  - Hemiparesis [Unknown]
  - Gait disturbance [Unknown]
  - Balance disorder [Unknown]
  - Flushing [Unknown]
  - Rash pruritic [Unknown]
  - Muscular weakness [Unknown]
